FAERS Safety Report 8767100 (Version 2)
Quarter: 2013Q3

REPORT INFORMATION
  Report Type: Report from Study
  Country: GB (occurrence: GB)
  Receive Date: 20120831
  Receipt Date: 20130717
  Transmission Date: 20140515
  Serious: Yes (Hospitalization)
  Sender: FDA-Public Use
  Company Number: GB-ELI_LILLY_AND_COMPANY-GB201208007528

PATIENT
  Age: 62 Year
  Sex: Male
  Weight: 80.6 kg

DRUGS (10)
  1. PEMETREXED [Suspect]
     Indication: NON-SMALL CELL LUNG CANCER
     Dosage: 500 MG/M2, UNKNOWN
     Route: 042
     Dates: start: 20120629
  2. TAXOL [Suspect]
     Indication: NON-SMALL CELL LUNG CANCER
     Dosage: 175 MG/M2, UNKNOWN
     Route: 042
     Dates: start: 20120629
  3. MACROGOL [Concomitant]
     Indication: CONSTIPATION
     Dosage: 1 DF, PRN
     Route: 048
  4. SIMVASTATIN [Concomitant]
     Indication: BLOOD CHOLESTEROL
     Dosage: 40 MG, QD
     Route: 048
  5. BISOPROLOL [Concomitant]
     Indication: HYPERTENSION
     Dosage: 2.5 MG, EACH MORNING
     Route: 048
  6. FOLIC ACID [Concomitant]
     Indication: SUPPLEMENTATION THERAPY
     Dosage: 5 MG, EACH MORNING
     Route: 048
     Dates: start: 20120606
  7. ONDANSETRON [Concomitant]
     Indication: PROPHYLAXIS OF NAUSEA AND VOMITING
     Dosage: 8 MG, BID
     Route: 048
     Dates: start: 20120811, end: 20120811
  8. DEXAMETHASONE [Concomitant]
     Indication: SUPPLEMENTATION THERAPY
     Dosage: 4 MG, BID
     Route: 048
     Dates: start: 20120811, end: 20120813
  9. METOCLOPRAMIDE [Concomitant]
     Indication: NAUSEA
     Dosage: 10 MG, PRN
     Route: 048
     Dates: start: 20120811
  10. VITAMIN B12 [Concomitant]
     Dosage: 1000 MCG
     Route: 030
     Dates: start: 20120810, end: 20120810

REACTIONS (2)
  - Pyrexia [Recovered/Resolved]
  - Infection [Recovered/Resolved with Sequelae]
